FAERS Safety Report 22898258 (Version 2)
Quarter: 2023Q4

REPORT INFORMATION
  Report Type: Report from Study
  Country: US (occurrence: US)
  Receive Date: 20230903
  Receipt Date: 20231006
  Transmission Date: 20240110
  Serious: Yes (Death)
  Sender: FDA-Public Use
  Company Number: US-ABBVIE-5392273

PATIENT
  Sex: Female
  Weight: 77.111 kg

DRUGS (1)
  1. HUMIRA [Suspect]
     Active Substance: ADALIMUMAB
     Indication: Rheumatoid arthritis
     Dosage: FORM STRENGTH WAS 40 MILLIGRAM.?CITRATE FREE.
     Route: 058
     Dates: start: 20230701, end: 20230814

REACTIONS (3)
  - Hiatus hernia [Fatal]
  - Blood pressure abnormal [Unknown]
  - Infection [Unknown]

NARRATIVE: CASE EVENT DATE: 20230101
